FAERS Safety Report 9769046 (Version 1)
Quarter: 2013Q4

REPORT INFORMATION
  Report Type: Spontaneous
  Country: US (occurrence: None)
  Receive Date: 20131217
  Receipt Date: 20131217
  Transmission Date: 20140711
  Serious: Yes (Other)
  Sender: FDA-Public Use
  Company Number: None

PATIENT
  Age: 6 Year
  Sex: Male
  Weight: 20.87 kg

DRUGS (1)
  1. DEXTROAMPHETAMINE [Suspect]
     Indication: ATTENTION DEFICIT/HYPERACTIVITY DISORDER
     Dosage: ADDERALL XR GENERIC
     Route: 048
     Dates: start: 20131112, end: 20131125

REACTIONS (6)
  - Anger [None]
  - Mood swings [None]
  - Disturbance in attention [None]
  - Impulsive behaviour [None]
  - Condition aggravated [None]
  - Product substitution issue [None]
